FAERS Safety Report 26058181 (Version 1)
Quarter: 2025Q4

REPORT INFORMATION
  Report Type: Spontaneous
  Country: US (occurrence: US)
  Receive Date: 20251118
  Receipt Date: 20251118
  Transmission Date: 20260118
  Serious: No
  Sender: AUROBINDO
  Company Number: US-AUROBINDO-AUR-APL-2024-059806

PATIENT
  Age: 68 Year
  Sex: Female
  Weight: 39.9 kg

DRUGS (1)
  1. CLONAZEPAM [Suspect]
     Active Substance: CLONAZEPAM
     Indication: Anxiety
     Dosage: UNK
     Route: 065
     Dates: start: 20241105

REACTIONS (11)
  - Migraine [Unknown]
  - Vision blurred [Unknown]
  - Dizziness [Unknown]
  - Disorientation [Unknown]
  - Eye pain [Unknown]
  - Decreased appetite [Unknown]
  - Weight decreased [Unknown]
  - Malaise [Unknown]
  - Ear discomfort [Unknown]
  - Facial pain [Unknown]
  - Product substitution issue [Unknown]
